FAERS Safety Report 17194411 (Version 2)
Quarter: 2022Q3

REPORT INFORMATION
  Report Type: Spontaneous
  Country: JP (occurrence: JP)
  Receive Date: 20191224
  Receipt Date: 20220810
  Transmission Date: 20221027
  Serious: Yes (Hospitalization, Other)
  Sender: FDA-Public Use
  Company Number: JP-SAKK-2019SA351211AA

PATIENT
  Age: 67 Year
  Sex: Female

DRUGS (4)
  1. TAXOTERE [Suspect]
     Active Substance: DOCETAXEL
     Indication: Breast cancer
     Route: 041
  2. HERCEPTIN [Concomitant]
     Active Substance: TRASTUZUMAB
     Indication: Breast cancer
     Route: 065
  3. ADRIACIN [Concomitant]
     Active Substance: DOXORUBICIN HYDROCHLORIDE
     Indication: Breast cancer
     Route: 065
  4. CYCLOPHOSPHAMIDE [Concomitant]
     Active Substance: CYCLOPHOSPHAMIDE
     Indication: Breast cancer
     Route: 065

REACTIONS (10)
  - Type 1 diabetes mellitus [Unknown]
  - Thirst [Unknown]
  - Autoantibody positive [Unknown]
  - Blood glucose increased [Unknown]
  - Diabetic ketoacidosis [Unknown]
  - Metabolic acidosis [Unknown]
  - Altered state of consciousness [Recovered/Resolved]
  - Herpes zoster [Unknown]
  - Oral candidiasis [Unknown]
  - Oral pain [Unknown]
